FAERS Safety Report 9748021 (Version 1)
Quarter: 2013Q4

REPORT INFORMATION
  Report Type: Spontaneous
  Country: US (occurrence: None)
  Receive Date: 20131211
  Receipt Date: 20131211
  Transmission Date: 20140711
  Serious: No
  Sender: FDA-Public Use
  Company Number: None

PATIENT
  Sex: 0

DRUGS (1)
  1. TRAMADOL [Suspect]
     Indication: PAIN
     Dosage: 30 TAKE 1 TO 2 TABLETS BY MOUTH
     Route: 048
     Dates: start: 20131127, end: 20131127

REACTIONS (1)
  - Musculoskeletal chest pain [None]
